FAERS Safety Report 10057471 (Version 1)
Quarter: 2014Q2

REPORT INFORMATION
  Report Type: Spontaneous
  Country: US (occurrence: US)
  Receive Date: 20140403
  Receipt Date: 20140403
  Transmission Date: 20141212
  Serious: Yes (Other)
  Sender: FDA-Public Use
  Company Number: US-RB-065417-14

PATIENT
  Sex: Female

DRUGS (3)
  1. BUPRENORPHINE GENERIC [Suspect]
     Route: 060
     Dates: end: 2012
  2. BUPRENORPHINE GENERIC [Suspect]
     Indication: DRUG DEPENDENCE
     Dosage: MEDICALLY TAPERED THROUGHOUT PREGNANCY TO 2 MG/DAILY (CUTTING)
     Route: 060
     Dates: start: 2012
  3. NICOTINE [Concomitant]
     Indication: NICOTINE DEPENDENCE
     Dosage: LESS THAN HALF A PACK OF CIGARETTES A DAY
     Route: 055

REACTIONS (3)
  - Maternal exposure during pregnancy [Recovered/Resolved]
  - Wrong technique in drug usage process [Not Recovered/Not Resolved]
  - Premature delivery [Recovered/Resolved]
